FAERS Safety Report 5530726-8 (Version None)
Quarter: 2007Q4

REPORT INFORMATION
  Report Type: 
  Country: None (occurrence: None)
  Receive Date: 20071128
  Receipt Date: 20071128
  Transmission Date: 20080405
  Serious: Yes (Hospitalization)
  Sender: FDA-Public Use
  Company Number: None

PATIENT
  Sex: Male
  Weight: 95.2554 kg

DRUGS (2)
  1. CYMBALTA [Suspect]
     Indication: DEPRESSION
     Dosage: 30 MG AUG7-AUG13 60MG AUG14-AUG23 1 X DAY
     Dates: start: 20070807, end: 20070813
  2. CYMBALTA [Suspect]
     Indication: DEPRESSION
     Dosage: 30 MG AUG7-AUG13 60MG AUG14-AUG23 1 X DAY
     Dates: start: 20070814, end: 20070823

REACTIONS (8)
  - ABNORMAL DREAMS [None]
  - ADVERSE DRUG REACTION [None]
  - AGGRESSION [None]
  - AGITATION [None]
  - ANGER [None]
  - FALL [None]
  - HYPERHIDROSIS [None]
  - RESTLESSNESS [None]
